FAERS Safety Report 26092602 (Version 1)
Quarter: 2025Q4

REPORT INFORMATION
  Report Type: Spontaneous
  Country: CN (occurrence: CN)
  Receive Date: 20251126
  Receipt Date: 20251126
  Transmission Date: 20260117
  Serious: No
  Sender: ALKEM
  Company Number: CN-ALKEM LABORATORIES LIMITED-CN-ALKEM-2025-06451

PATIENT
  Age: 8 Year
  Sex: Female
  Weight: 22.3 kg

DRUGS (16)
  1. MYCOPHENOLATE MOFETIL [Suspect]
     Active Substance: MYCOPHENOLATE MOFETIL
     Indication: Henoch-Schonlein purpura
     Dosage: UNK (TWO DOSES, TOTALING 0.75 GRAM PER DAY)
     Route: 048
     Dates: start: 202112
  2. MYCOPHENOLATE MOFETIL [Suspect]
     Active Substance: MYCOPHENOLATE MOFETIL
     Indication: Nephritis
     Dosage: 0.75 GRAM, QD (RECHALLENGE DOSE)
     Route: 048
     Dates: start: 202212
  3. METHYLPREDNISOLONE [Suspect]
     Active Substance: METHYLPREDNISOLONE
     Indication: Henoch-Schonlein purpura
     Dosage: UNK (PULSE THERAPY)
     Route: 065
  4. METHYLPREDNISOLONE [Suspect]
     Active Substance: METHYLPREDNISOLONE
     Indication: Nephritis
  5. CYCLOPHOSPHAMIDE [Suspect]
     Active Substance: CYCLOPHOSPHAMIDE
     Indication: Henoch-Schonlein purpura
     Dosage: 3.2 GRAM (EIGHT CYCLES) (TOTAL DOSAGE)
     Route: 042
  6. CYCLOPHOSPHAMIDE [Suspect]
     Active Substance: CYCLOPHOSPHAMIDE
     Indication: Nephritis
  7. DAPAGLIFLOZIN [Concomitant]
     Active Substance: DAPAGLIFLOZIN
     Indication: Henoch-Schonlein purpura
     Dosage: 5 MILLIGRAM, QD
     Route: 065
     Dates: start: 202307
  8. DAPAGLIFLOZIN [Concomitant]
     Active Substance: DAPAGLIFLOZIN
     Indication: Nephritis
  9. FOSINOPRIL [Concomitant]
     Active Substance: FOSINOPRIL
     Indication: Henoch-Schonlein purpura
     Dosage: UNK
     Route: 065
  10. FOSINOPRIL [Concomitant]
     Active Substance: FOSINOPRIL
     Indication: Nephritis
  11. LEFLUNOMIDE [Concomitant]
     Active Substance: LEFLUNOMIDE
     Indication: Henoch-Schonlein purpura
     Dosage: 10 MILLIGRAM, QD
     Route: 048
     Dates: start: 202205
  12. LEFLUNOMIDE [Concomitant]
     Active Substance: LEFLUNOMIDE
     Indication: Nephritis
  13. RITUXIMAB [Concomitant]
     Active Substance: RITUXIMAB
     Indication: Henoch-Schonlein purpura
     Dosage: 375 MILLIGRAM/SQ. METER, BID
     Route: 065
     Dates: start: 20220718
  14. RITUXIMAB [Concomitant]
     Active Substance: RITUXIMAB
     Indication: Nephritis
     Dosage: 375 MILLIGRAM/SQ. METER, BID
     Route: 065
     Dates: start: 20220725
  15. RITUXIMAB [Concomitant]
     Active Substance: RITUXIMAB
     Dosage: UNK
     Route: 065
     Dates: start: 20230307
  16. RITUXIMAB [Concomitant]
     Active Substance: RITUXIMAB
     Dosage: UNK
     Route: 065
     Dates: start: 20230315

REACTIONS (2)
  - Upper respiratory tract infection [Unknown]
  - Drug ineffective [Unknown]

NARRATIVE: CASE EVENT DATE: 20231001
